FAERS Safety Report 6288786-5 (Version None)
Quarter: 2009Q3

REPORT INFORMATION
  Report Type: 
  Country: None (occurrence: None)
  Receive Date: 20090729
  Receipt Date: 20090605
  Transmission Date: 20100115
  Serious: Yes (Other)
  Sender: FDA-Public Use
  Company Number: US-PURDUE-USA-2009-0039082

PATIENT
  Sex: Male
  Weight: 149.66 kg

DRUGS (2)
  1. OXYCONTIN [Suspect]
     Indication: PAIN
     Dosage: 20 MG, SEE TEXT
     Dates: start: 20001109
  2. DURAGESIC-100 [Concomitant]

REACTIONS (1)
  - COMA [None]
